FAERS Safety Report 7483550-3 (Version None)
Quarter: 2011Q2

REPORT INFORMATION
  Report Type: 
  Country: None (occurrence: None)
  Receive Date: 20110509
  Receipt Date: 20110426
  Transmission Date: 20111010
  Serious: Yes (Hospitalization, Disabling)
  Sender: FDA-Public Use
  Company Number: 1000020627

PATIENT
  Sex: Female

DRUGS (2)
  1. MEMANTINE HYDROCHLORIDE [Suspect]
     Indication: DEMENTIA
     Dosage: ORAL
     Route: 048
     Dates: start: 20101026, end: 20101221
  2. ASPIRIN [Suspect]

REACTIONS (5)
  - MALAISE [None]
  - HEADACHE [None]
  - DIZZINESS [None]
  - DISEASE PRODROMAL STAGE [None]
  - CEREBELLAR SYNDROME [None]
